FAERS Safety Report 9849304 (Version 3)
Quarter: 2014Q1

REPORT INFORMATION
  Report Type: Spontaneous
  Country: IT (occurrence: IT)
  Receive Date: 20140128
  Receipt Date: 20140227
  Transmission Date: 20141002
  Serious: Yes (Hospitalization)
  Sender: FDA-Public Use
  Company Number: IT-TEVA-458503ISR

PATIENT
  Age: 42 Year
  Sex: Male

DRUGS (3)
  1. METFORMIN HYDROCHLORIDE [Suspect]
     Indication: SUICIDE ATTEMPT
     Dosage: 8.5 GRAM DAILY;
     Route: 048
     Dates: start: 20131004, end: 20131004
  2. NOVOMIX FLEXPEN - 100 U/ML SOSPENSIONE INIETTABILE - NOVO NORDISK A/S [Suspect]
     Indication: SUICIDE ATTEMPT
     Dosage: 140 IU (INTERNATIONAL UNIT) DAILY;
     Route: 058
     Dates: start: 20131004, end: 20131004
  3. LANTUS - 100 IU/ML SOLUZIONE INIETTABILE [Concomitant]
     Indication: PRODUCT USED FOR UNKNOWN INDICATION
     Route: 058

REACTIONS (3)
  - Hypoglycaemic coma [Recovered/Resolved]
  - Suicide attempt [Recovered/Resolved]
  - Drug abuse [Recovered/Resolved]
